FAERS Safety Report 8226417-5 (Version None)
Quarter: 2012Q1

REPORT INFORMATION
  Report Type: 
  Country: None (occurrence: None)
  Receive Date: 20120321
  Receipt Date: 20120313
  Transmission Date: 20120608
  Serious: Yes (Disabling)
  Sender: FDA-Public Use
  Company Number: AE-ASTRAZENECA-2012SE17380

PATIENT
  Sex: Male

DRUGS (4)
  1. ACEI [Concomitant]
     Indication: HYPERTENSION
  2. ATORVASTATIN [Suspect]
  3. CRESTOR [Suspect]
     Indication: DYSLIPIDAEMIA
     Route: 048
     Dates: start: 20110101
  4. ASPIRIN [Concomitant]
     Indication: HYPERTENSION

REACTIONS (1)
  - ERECTILE DYSFUNCTION [None]
